FAERS Safety Report 6620921-9 (Version None)
Quarter: 2010Q1

REPORT INFORMATION
  Report Type: 
  Country: None (occurrence: None)
  Receive Date: 20100309
  Receipt Date: 20100225
  Transmission Date: 20100710
  Serious: Yes (Other)
  Sender: FDA-Public Use
  Company Number: JP-PFIZER INC-2010027348

PATIENT
  Age: 76 Year
  Sex: Male

DRUGS (5)
  1. SEIBULE [Suspect]
     Dosage: UNK
     Route: 048
     Dates: start: 20060101
  2. MICARDIS [Suspect]
     Indication: HYPERTENSION
     Dosage: UNK
     Route: 048
     Dates: start: 20061017, end: 20090128
  3. MITIGLINIDE [Suspect]
     Dosage: UNK
     Route: 048
     Dates: start: 20080227
  4. TAKEPRON [Concomitant]
     Dosage: UNK
     Route: 048
     Dates: start: 20070101
  5. NAUZELIN [Concomitant]
     Dosage: UNK MG, UNK
     Route: 048
     Dates: start: 20080109

REACTIONS (1)
  - HYPERKALAEMIA [None]
